FAERS Safety Report 4394097-5 (Version None)
Quarter: 2004Q3

REPORT INFORMATION
  Report Type: 
  Country: None (occurrence: None)
  Receive Date: 20040701
  Receipt Date: 20040622
  Transmission Date: 20050211
  Serious: No
  Sender: FDA-Public Use
  Company Number: ZLBIGIV/04/22/USA

PATIENT
  Age: 66 Year
  Sex: Male
  Weight: 102.0593 kg

DRUGS (13)
  1. CARIMUNE [Suspect]
     Indication: CHRONIC INFLAMMATORY DEMYELINATING POLYRADICULONEUROPATHY
     Dosage: 99 G, EVERY THREE WEEKS, I.V.
     Route: 042
     Dates: start: 20040316, end: 20040427
  2. NEURONTIN [Concomitant]
  3. GEMFIBROZIL [Concomitant]
  4. CELEBREX [Concomitant]
  5. ALLOPURINOL [Concomitant]
  6. PLETAL [Concomitant]
  7. ATENOLOL [Concomitant]
  8. FUROSEMIDE [Concomitant]
  9. ASPIRIN [Concomitant]
  10. AVAPRO [Concomitant]
  11. TRILEPTAL [Concomitant]
  12. CARIMUNE [Suspect]
     Indication: CHRONIC INFLAMMATORY DEMYELINATING POLYRADICULONEUROPATHY
     Dosage: 48 G, ONCE, I.V.
     Route: 042
     Dates: start: 20070527, end: 20040527
  13. CARIMUNE [Suspect]

REACTIONS (7)
  - DRY SKIN [None]
  - HAEMORRHAGE [None]
  - LOCALISED EXFOLIATION [None]
  - PAIN [None]
  - PSORIASIS [None]
  - RASH GENERALISED [None]
  - SKIN FISSURES [None]
